FAERS Safety Report 5252482-3 (Version None)
Quarter: 2007Q1

REPORT INFORMATION
  Report Type: 
  Country: None (occurrence: None)
  Receive Date: 20070301
  Receipt Date: 20061208
  Transmission Date: 20070707
  Serious: Yes (Other)
  Sender: FDA-Public Use
  Company Number: US-BRISTOL-MYERS SQUIBB COMPANY-13606645

PATIENT
  Sex: Female

DRUGS (1)
  1. ERBITUX [Suspect]
     Dates: start: 20061206

REACTIONS (1)
  - RESPIRATORY DISTRESS [None]
